FAERS Safety Report 6607191-2 (Version None)
Quarter: 2010Q1

REPORT INFORMATION
  Report Type: 
  Country: None (occurrence: None)
  Receive Date: 20100227
  Receipt Date: 20100215
  Transmission Date: 20100710
  Serious: Yes (Death)
  Sender: FDA-Public Use
  Company Number: US-JNJFOC-20100209479

PATIENT
  Age: 68 Year
  Sex: Male
  Weight: 82.1 kg

DRUGS (5)
  1. FENTANYL-100 [Suspect]
     Indication: DRUG USE FOR UNKNOWN INDICATION
     Route: 062
  2. DIPHENHYDRAMINE HCL [Concomitant]
  3. LIDOCAINE [Concomitant]
  4. FLUCONAZOLE [Concomitant]
  5. DESMETHYLDIAZEPAM [Concomitant]

REACTIONS (5)
  - ANALGESIC DRUG LEVEL INCREASED [None]
  - ARTERIOSCLEROSIS [None]
  - CARDIAC FAILURE [None]
  - HYPERTENSION [None]
  - NON-SMALL CELL LUNG CANCER METASTATIC [None]
